FAERS Safety Report 5033994-4 (Version None)
Quarter: 2006Q2

REPORT INFORMATION
  Report Type: 
  Country: None (occurrence: None)
  Receive Date: 20060626
  Receipt Date: 20060619
  Transmission Date: 20061013
  Serious: Yes (Hospitalization, Other)
  Sender: FDA-Public Use
  Company Number: FR-BRISTOL-MYERS SQUIBB COMPANY-13418496

PATIENT
  Age: 84 Year
  Sex: Male
  Weight: 50 kg

DRUGS (9)
  1. COUMADIN [Suspect]
     Route: 048
     Dates: start: 20051226, end: 20060102
  2. ROCEPHIN [Suspect]
     Route: 042
     Dates: start: 20060103, end: 20060112
  3. CORVASAL [Concomitant]
  4. COVERSYL [Concomitant]
  5. LASILIX [Concomitant]
  6. VASTEN [Concomitant]
  7. ZOLOFT [Concomitant]
  8. ZOXAN [Concomitant]
  9. DIETHYLSTILBESTROL [Concomitant]
     Dates: start: 20051101

REACTIONS (4)
  - HAEMATURIA [None]
  - HYPOVITAMINOSIS [None]
  - OVERDOSE [None]
  - PROTHROMBIN TIME SHORTENED [None]
